FAERS Safety Report 23870313 (Version 1)
Quarter: 2024Q2

REPORT INFORMATION
  Report Type: Spontaneous
  Country: US (occurrence: US)
  Receive Date: 20240517
  Receipt Date: 20240517
  Transmission Date: 20240716
  Serious: No
  Sender: FDA-Public Use
  Company Number: US-009507513-2404USA011641

PATIENT
  Sex: Male

DRUGS (2)
  1. WELIREG [Suspect]
     Active Substance: BELZUTIFAN
     Indication: Renal cell carcinoma
     Dosage: 40 MILLIGRAM, TID
     Route: 048
     Dates: end: 20240225
  2. WELIREG [Suspect]
     Active Substance: BELZUTIFAN
     Dosage: 40 MILLIGRAM, BID
     Route: 048
     Dates: start: 20240226

REACTIONS (2)
  - Laboratory test abnormal [Unknown]
  - Drug tolerance [Unknown]
